FAERS Safety Report 5979236-4 (Version None)
Quarter: 2008Q4

REPORT INFORMATION
  Report Type: 
  Country: None (occurrence: None)
  Receive Date: 20081204
  Receipt Date: 20081201
  Transmission Date: 20090506
  Serious: Yes (Hospitalization)
  Sender: FDA-Public Use
  Company Number: US-AMGEN-QUU321407

PATIENT
  Sex: Male

DRUGS (2)
  1. EPOGEN [Suspect]
     Indication: RENAL FAILURE CHRONIC
     Dates: start: 20080324
  2. PROCRIT [Suspect]
     Indication: RENAL FAILURE CHRONIC
     Route: 065
     Dates: start: 20071025

REACTIONS (1)
  - HOSPITALISATION [None]
